FAERS Safety Report 7406539-9 (Version None)
Quarter: 2011Q2

REPORT INFORMATION
  Report Type: 
  Country: None (occurrence: None)
  Receive Date: 20110411
  Receipt Date: 20110330
  Transmission Date: 20111010
  Serious: Yes (Hospitalization, Other)
  Sender: FDA-Public Use
  Company Number: FR-ELI_LILLY_AND_COMPANY-FR201010004219

PATIENT
  Sex: Female

DRUGS (20)
  1. AVASTIN [Concomitant]
     Dosage: UNK
     Dates: start: 20110105
  2. ZOPHREN [Concomitant]
     Dosage: ON DAY 2 AND 3 OF CHEMOTHERAPY, UNKNOWN
     Route: 065
  3. AVASTIN [Concomitant]
     Indication: BRONCHIAL CARCINOMA
     Dosage: 480 MG PER CYCLE
     Route: 065
     Dates: start: 20100727
  4. PREDNISONE [Concomitant]
     Dosage: UNK, UNKNOWN
     Route: 065
  5. NEXIUM [Concomitant]
     Dosage: UNK, UNKNOWN
     Route: 065
  6. EMEND [Concomitant]
     Dosage: UNK, UNKNOWN
     Route: 065
  7. AVASTIN [Concomitant]
     Dosage: UNK
     Dates: start: 20110217
  8. CISPLATIN [Concomitant]
     Dosage: 126 MG, UNKNOWN
     Route: 042
     Dates: start: 20100824
  9. OXYCONTIN [Concomitant]
     Dosage: UNK, UNKNOWN
     Route: 065
  10. ALIMTA [Suspect]
     Indication: BRONCHIAL CARCINOMA
     Dosage: 845 MG PER CYCLE
     Route: 042
  11. CISPLATIN [Concomitant]
     Indication: BRONCHIAL CARCINOMA
     Dosage: 126 MG, UNKNOWN
     Route: 042
     Dates: start: 20100727
  12. LYRICA [Concomitant]
     Dosage: UNK, UNKNOWN
     Route: 065
  13. URBANYL [Concomitant]
     Dosage: UNK, UNKNOWN
     Route: 065
  14. INNOHEP [Concomitant]
     Dosage: UNK, UNKNOWN
     Route: 065
  15. AVASTIN [Concomitant]
     Dosage: UNK
     Dates: start: 20100920
  16. LEVOTHYROX [Concomitant]
     Dosage: UNK, UNKNOWN
     Route: 065
  17. FOSAMAX [Concomitant]
     Dosage: UNK, UNKNOWN
     Route: 065
  18. AVASTIN [Concomitant]
     Dosage: UNK
     Dates: start: 20101011
  19. KEPPRA [Concomitant]
     Dosage: UNK, UNKNOWN
     Route: 065
  20. DIFFU-K [Concomitant]
     Dosage: UNK, UNKNOWN
     Route: 065

REACTIONS (2)
  - CERVICAL ROOT PAIN [None]
  - PULMONARY EMBOLISM [None]
